FAERS Safety Report 16217070 (Version 1)
Quarter: 2019Q2

REPORT INFORMATION
  Report Type: Spontaneous
  Country: US (occurrence: US)
  Receive Date: 20190419
  Receipt Date: 20190419
  Transmission Date: 20190711
  Serious: No
  Sender: FDA-Public Use
  Company Number: PHEH2019US016376

PATIENT
  Sex: Female

DRUGS (1)
  1. PREDNISONE TABLETS USP [Suspect]
     Active Substance: PREDNISONE
     Indication: INFLAMMATION
     Dosage: 500 MG, UNK (3 DAY DOSE)
     Route: 065

REACTIONS (1)
  - Discomfort [Unknown]
